FAERS Safety Report 11498041 (Version 1)
Quarter: 2015Q3

REPORT INFORMATION
  Report Type: Report from Study
  Country: AR (occurrence: AR)
  Receive Date: 20150911
  Receipt Date: 20150911
  Transmission Date: 20151125
  Serious: Yes (Hospitalization)
  Sender: FDA-Public Use
  Company Number: AR-EMD SERONO-7256121

PATIENT
  Sex: Male

DRUGS (2)
  1. SAIZEN [Suspect]
     Active Substance: SOMATROPIN
     Indication: CONGENITAL ANOMALY
     Dates: start: 20121113, end: 20141031
  2. SAIZEN [Suspect]
     Active Substance: SOMATROPIN
     Dates: start: 20141031

REACTIONS (4)
  - Educational problem [Unknown]
  - Hepatic function abnormal [Recovered/Resolved]
  - Off label use [Unknown]
  - Kidney perforation [Unknown]
